FAERS Safety Report 25297492 (Version 1)
Quarter: 2025Q2

REPORT INFORMATION
  Report Type: Spontaneous
  Country: GB (occurrence: GB)
  Receive Date: 20250511
  Receipt Date: 20250511
  Transmission Date: 20250716
  Serious: Yes (Life-Threatening, Hospitalization, Other)
  Sender: CSL BEHRING
  Company Number: None

PATIENT
  Age: 39 Year
  Sex: Female
  Weight: 81 kg

DRUGS (7)
  1. HUMAN RHO(D) IMMUNE GLOBULIN [Suspect]
     Active Substance: HUMAN RHO(D) IMMUNE GLOBULIN
     Indication: Adverse event
     Route: 065
     Dates: start: 20241230
  2. HUMAN RHO(D) IMMUNE GLOBULIN [Suspect]
     Active Substance: HUMAN RHO(D) IMMUNE GLOBULIN
     Indication: Foetal-maternal haemorrhage
  3. TINZAPARIN [Concomitant]
     Active Substance: TINZAPARIN
     Indication: Thrombosis prophylaxis
     Route: 065
     Dates: start: 20241229
  4. DIHYDROCODEINE [Concomitant]
     Active Substance: DIHYDROCODEINE
     Indication: Procedural pain
     Route: 065
     Dates: start: 20241230
  5. DIHYDROCODEINE [Concomitant]
     Active Substance: DIHYDROCODEINE
     Indication: Adverse drug reaction
  6. ONDANSETRON [Concomitant]
     Active Substance: ONDANSETRON
     Indication: Post procedural discomfort
     Route: 065
     Dates: start: 20250102
  7. ONDANSETRON [Concomitant]
     Active Substance: ONDANSETRON
     Indication: Adverse drug reaction

REACTIONS (5)
  - Tachycardia [Recovered/Resolved]
  - Body temperature increased [Unknown]
  - Coma scale abnormal [Unknown]
  - Chills [Unknown]
  - Circulatory collapse [Unknown]

NARRATIVE: CASE EVENT DATE: 20241230
